FAERS Safety Report 9551959 (Version 1)
Quarter: 2013Q3

REPORT INFORMATION
  Report Type: Spontaneous
  Country: FR (occurrence: FR)
  Receive Date: 20130925
  Receipt Date: 20130925
  Transmission Date: 20140515
  Serious: Yes (Hospitalization)
  Sender: FDA-Public Use
  Company Number: FR-009507513-1309FRA007820

PATIENT
  Age: 71 Year
  Sex: Female

DRUGS (1)
  1. DIPROSTENE [Suspect]
     Indication: CERVICOBRACHIAL SYNDROME
     Dosage: UNK, ONCE
     Dates: start: 20130531, end: 20130531

REACTIONS (1)
  - Posterior reversible encephalopathy syndrome [Recovering/Resolving]
